FAERS Safety Report 10489649 (Version 1)
Quarter: 2014Q3

REPORT INFORMATION
  Report Type: Spontaneous
  Country: US (occurrence: None)
  Receive Date: 20140815
  Receipt Date: 20140815
  Transmission Date: 20150326
  Serious: Yes (Other)
  Sender: FDA-Public Use
  Company Number: ADR-2013-01817

PATIENT
  Age: 66 Year
  Sex: Female

DRUGS (4)
  1. MORPHINE INTRATHECAL [Suspect]
     Active Substance: MORPHINE
     Indication: PAIN
  2. CLONIDINE. [Suspect]
     Active Substance: CLONIDINE
     Route: 037
  3. ACTIQ [Suspect]
     Active Substance: FENTANYL CITRATE
     Dosage: 2 LOZENGES AS NEED PER DAY FOR CHRONIC INTRATABLE PAIN FOR 30 DAYS, STARTED DATE NOT REPORTED
  4. BACLOFEN INTRATHECAL [Suspect]
     Active Substance: BACLOFEN
     Indication: PAIN

REACTIONS (5)
  - Drug withdrawal syndrome [None]
  - Vomiting [None]
  - Hyperhidrosis [None]
  - Nausea [None]
  - Underdose [None]

NARRATIVE: CASE EVENT DATE: 20130725
